FAERS Safety Report 8517496-6 (Version None)
Quarter: 2012Q3

REPORT INFORMATION
  Report Type: 
  Country: None (occurrence: None)
  Receive Date: 20120718
  Receipt Date: 20120704
  Transmission Date: 20120928
  Serious: Yes (Hospitalization)
  Sender: FDA-Public Use
  Company Number: NL-009507513-1206USA04932

PATIENT

DRUGS (5)
  1. TRIAMTERENE AND HYDROCHLOROTHIAZIDE [Concomitant]
  2. AMITRIPTYLINE HCL [Suspect]
     Indication: DEPRESSION
     Dosage: 25 MG, TID
     Route: 048
     Dates: start: 20120227, end: 20120417
  3. CLOMIPRAMINE HYDROCHLORIDE [Suspect]
     Indication: DEPRESSION
     Dosage: 25 MG, TID
     Route: 048
     Dates: start: 19871217, end: 20120227
  4. SELOKEEN [Concomitant]
     Dosage: 200 MG, QD
     Dates: start: 19750101
  5. LISINOPRIL [Concomitant]
     Dosage: 5 MG, QD
     Route: 048
     Dates: start: 20110923

REACTIONS (2)
  - HYPOMANIA [None]
  - MANIA [None]
